FAERS Safety Report 7152006-X (Version None)
Quarter: 2010Q4

REPORT INFORMATION
  Report Type: 
  Country: None (occurrence: None)
  Receive Date: 20101211
  Receipt Date: 20101208
  Transmission Date: 20110411
  Serious: Yes (Death)
  Sender: FDA-Public Use
  Company Number: VE-PFIZER INC-2010167733

PATIENT
  Age: 80 Year
  Sex: Male

DRUGS (1)
  1. LIPITOR [Suspect]
     Indication: HYPERCHOLESTEROLAEMIA
     Dosage: 20 MG, 1X/DAY
     Route: 048
     Dates: start: 20090101

REACTIONS (1)
  - PROSTATE CANCER [None]
